FAERS Safety Report 17827774 (Version 1)
Quarter: 2020Q2

REPORT INFORMATION
  Report Type: Other
  Country: CA (occurrence: CA)
  Receive Date: 20200527
  Receipt Date: 20200527
  Transmission Date: 20200714
  Serious: Yes (Death, Other)
  Sender: FDA-Public Use
  Company Number: CA-APOTEX-2020AP011263

PATIENT
  Age: 84 Year
  Sex: Female

DRUGS (2)
  1. AMOXICILLIN/ CLAVULANIC ACID [Suspect]
     Active Substance: AMOXICILLIN\CLAVULANIC ACID
     Indication: PRODUCT USED FOR UNKNOWN INDICATION
     Dosage: UNK, BID
     Route: 065
  2. ENTYVIO [Suspect]
     Active Substance: VEDOLIZUMAB
     Indication: COLITIS ULCERATIVE
     Dosage: 300 MG, UNK
     Route: 042

REACTIONS (9)
  - Blood urine present [Fatal]
  - Pyrexia [Fatal]
  - Colitis ulcerative [Fatal]
  - Abdominal pain upper [Fatal]
  - Back pain [Fatal]
  - Faeces soft [Fatal]
  - Pleural effusion [Fatal]
  - Cerebrovascular accident [Fatal]
  - Chills [Fatal]
